FAERS Safety Report 4635758-X (Version None)
Quarter: 2005Q2

REPORT INFORMATION
  Report Type: 
  Country: None (occurrence: None)
  Receive Date: 20050414
  Receipt Date: 20050331
  Transmission Date: 20051028
  Serious: Yes (Other)
  Sender: FDA-Public Use
  Company Number: 2005052816

PATIENT
  Age: 26 Year
  Sex: Male

DRUGS (3)
  1. PHENELZINE SULFATE (PHENELZINE SULFATE) [Suspect]
     Indication: ABNORMAL BEHAVIOUR
     Dosage: 60 MG, ORAL
     Route: 048
     Dates: start: 20041101
  2. GABAPENTIN [Concomitant]
  3. QUETIAPINE FUMARATE [Concomitant]

REACTIONS (18)
  - AGITATION [None]
  - ARTHRALGIA [None]
  - AURA [None]
  - BACK PAIN [None]
  - CONVULSION [None]
  - DRUG INEFFECTIVE [None]
  - DYSKINESIA [None]
  - EPILEPTIC AURA [None]
  - FATIGUE [None]
  - FEAR [None]
  - IRRITABILITY [None]
  - NAUSEA [None]
  - PAIN [None]
  - PAIN IN EXTREMITY [None]
  - PARAESTHESIA [None]
  - TENDON DISORDER [None]
  - TRANSIENT ISCHAEMIC ATTACK [None]
  - VERTIGO [None]
